FAERS Safety Report 7369289-3 (Version None)
Quarter: 2011Q1

REPORT INFORMATION
  Report Type: 
  Country: None (occurrence: None)
  Receive Date: 20110323
  Receipt Date: 20110316
  Transmission Date: 20110831
  Serious: Yes (Hospitalization)
  Sender: FDA-Public Use
  Company Number: A0919455A

PATIENT
  Age: 47 Year
  Sex: Female

DRUGS (1)
  1. LAMICTAL XR [Suspect]
     Route: 048
     Dates: start: 20080101

REACTIONS (4)
  - HERNIA [None]
  - INFECTION [None]
  - HERNIA REPAIR [None]
  - ABDOMINAL OPERATION [None]
